FAERS Safety Report 4363239-X (Version None)
Quarter: 2004Q2

REPORT INFORMATION
  Report Type: 
  Country: None (occurrence: None)
  Receive Date: 20040518
  Receipt Date: 20040507
  Transmission Date: 20050107
  Serious: Yes (Hospitalization)
  Sender: FDA-Public Use
  Company Number: 04P-056-0249091-00

PATIENT
  Age: 74 Year
  Sex: Male

DRUGS (10)
  1. LIPANTHYL (TRICOR) (FENOFIBRATE) (FENOFIBRATE) [Suspect]
     Dosage: 200 MG , 1 IN 1D, PER ORAL
     Route: 047
  2. FLUINDIONE (FLUINDIONE) [Suspect]
     Indication: CORONARY ARTERY DISEASE
     Dosage: 20 MG
  3. NITROGLYCERIN [Suspect]
     Dosage: 5 MG, 1 IN 1 D
  4. PREDNISOLONE SODIUM SULFOBENZOATE 9PREDNISOLONE SODIUM SULFOBENZOATE) [Suspect]
     Dosage: 20 MG, 1 IN 1 D
  5. FUROSEMIDE [Suspect]
     Dosage: 20 MG, 1 IN 1 D
  6. AMLODINE BESILATE (AMLODIPINE BESILATE) [Suspect]
     Dosage: 5 MG, 1 IN 1 D
  7. BROMAZEPAM [Concomitant]
  8. FLUOXETINE HCL [Concomitant]
  9. OMEPRAZOLE [Concomitant]
  10. TIAPRIDE [Concomitant]

REACTIONS (2)
  - CONJUNCTIVAL HAEMORRHAGE [None]
  - DRUG INTERACTION [None]
